FAERS Safety Report 5922913-1 (Version None)
Quarter: 2008Q4

REPORT INFORMATION
  Report Type: 
  Country: None (occurrence: None)
  Receive Date: 20081017
  Receipt Date: 20081002
  Transmission Date: 20090506
  Serious: Yes (Death, Hospitalization)
  Sender: FDA-Public Use
  Company Number: CS-GENENTECH-269657

PATIENT
  Sex: Male

DRUGS (4)
  1. MABTHERA [Suspect]
     Indication: DIFFUSE LARGE B-CELL LYMPHOMA
     Dosage: 700 MG, Q3W
     Dates: start: 20050101
  2. ADRIAMYCIN PFS [Concomitant]
     Indication: DIFFUSE LARGE B-CELL LYMPHOMA
  3. ETOPOSIDE [Concomitant]
     Indication: DIFFUSE LARGE B-CELL LYMPHOMA
  4. CYTOXAN [Concomitant]
     Indication: DIFFUSE LARGE B-CELL LYMPHOMA

REACTIONS (2)
  - HEPATITIS B [None]
  - HEPATITIS FULMINANT [None]
